FAERS Safety Report 10247380 (Version 2)
Quarter: 2014Q3

REPORT INFORMATION
  Report Type: Report from Study
  Country: US (occurrence: US)
  Receive Date: 20140619
  Receipt Date: 20140709
  Transmission Date: 20150326
  Serious: Yes (Hospitalization)
  Sender: FDA-Public Use
  Company Number: US-ACTELION-A-NJ2014-100220

PATIENT
  Age: 59 Year
  Sex: Female

DRUGS (1)
  1. VELETRI [Suspect]
     Active Substance: EPOPROSTENOL
     Indication: PULMONARY ARTERIAL HYPERTENSION
     Dosage: 63 NG/KG, PER MIN
     Route: 042
     Dates: start: 20130711

REACTIONS (3)
  - Pneumonia [Unknown]
  - Pyrexia [Recovering/Resolving]
  - Dyspnoea [Recovering/Resolving]
